FAERS Safety Report 25348118 (Version 1)
Quarter: 2025Q2

REPORT INFORMATION
  Report Type: Spontaneous
  Country: US (occurrence: US)
  Receive Date: 20250522
  Receipt Date: 20250522
  Transmission Date: 20250716
  Serious: Yes (Other)
  Sender: COOPERSURGICAL
  Company Number: US-COOPERSURGICAL, INC.-2025CPS004019

PATIENT
  Age: 48 Year
  Sex: Female
  Weight: 69.841 kg

DRUGS (2)
  1. PARAGARD T 380A [Suspect]
     Active Substance: COPPER
     Indication: Contraception
     Route: 015
     Dates: start: 20120101
  2. ARMODAFINIL [Concomitant]
     Active Substance: ARMODAFINIL
     Dates: start: 20030101

REACTIONS (15)
  - Ovarian cyst [Recovered/Resolved]
  - Oophorectomy [Recovered/Resolved]
  - Device breakage [Recovered/Resolved]
  - Foreign body in reproductive tract [Recovered/Resolved]
  - Complication of device removal [Recovered/Resolved]
  - Uterine perforation [Recovered/Resolved]
  - Pelvic congestion [Unknown]
  - Sexual dysfunction [Not Recovered/Not Resolved]
  - Anxiety [Unknown]
  - Varicose vein [Unknown]
  - Varicose veins pelvic [Unknown]
  - Irritable bowel syndrome [Unknown]
  - Pelvic pain [Not Recovered/Not Resolved]
  - Device use issue [Recovered/Resolved]
  - Off label use [Unknown]

NARRATIVE: CASE EVENT DATE: 20120701
